FAERS Safety Report 9493251 (Version 2)
Quarter: 2013Q3

REPORT INFORMATION
  Report Type: Report from Study
  Country: US (occurrence: US)
  Receive Date: 20130902
  Receipt Date: 20130902
  Transmission Date: 20140515
  Serious: Yes (Hospitalization)
  Sender: FDA-Public Use
  Company Number: PHHO2010US11734

PATIENT
  Age: 70 Year
  Sex: Male
  Weight: 104.76 kg

DRUGS (11)
  1. ALISKIREN [Suspect]
     Indication: CARDIOVASCULAR DISORDER
     Route: 048
     Dates: start: 20100218, end: 20100713
  2. ALISKIREN [Suspect]
     Route: 048
     Dates: start: 20100715, end: 20111206
  3. METOPROLOL [Concomitant]
     Indication: HYPERTENSION
     Dosage: 50 MG
     Route: 048
  4. LISINOPRIL [Concomitant]
     Indication: HYPERTENSION
     Dosage: 40 MG
     Route: 048
     Dates: start: 19991115
  5. HYDROCHLOROTHIAZIDE [Concomitant]
     Indication: HYPERTENSION
     Dosage: 25 MG, QAM
     Route: 048
     Dates: start: 20071030
  6. METFORMIN [Concomitant]
     Indication: DIABETES MELLITUS
     Dosage: 1000 MG, BID
     Route: 048
     Dates: start: 19990224
  7. INSULIN GLARGINE [Concomitant]
     Indication: DIABETES MELLITUS
     Dosage: 60 U, AT NIGHT
     Route: 058
     Dates: start: 20011119, end: 20111206
  8. INSULIN GLARGINE [Concomitant]
     Dosage: 70 U, AT NIGHT
     Route: 058
     Dates: start: 20111207
  9. NOVOLOG [Concomitant]
     Indication: DIABETES MELLITUS
     Dosage: 18 U, BID
     Route: 058
     Dates: start: 20011218
  10. AMLODIPINE [Concomitant]
     Indication: HYPERTENSION
     Dosage: 5 MG, Q AM
     Route: 048
     Dates: start: 20111003, end: 20111206
  11. AMLODIPINE [Concomitant]
     Dates: start: 20111207

REACTIONS (10)
  - Orthostatic hypotension [Recovered/Resolved]
  - Dizziness [Recovered/Resolved]
  - Feeling hot [Recovered/Resolved]
  - Loss of consciousness [Recovered/Resolved]
  - Hypovolaemia [Recovered/Resolved]
  - Syncope [Recovered/Resolved]
  - Blood pressure orthostatic [Recovered/Resolved]
  - Diabetic autonomic neuropathy [Recovered/Resolved]
  - Glycosuria [Recovering/Resolving]
  - Dehydration [Recovered/Resolved]
